FAERS Safety Report 8415035-1 (Version None)
Quarter: 2012Q2

REPORT INFORMATION
  Report Type: 
  Country: None (occurrence: None)
  Receive Date: 20120606
  Receipt Date: 20120524
  Transmission Date: 20120825
  Serious: Yes (Hospitalization)
  Sender: FDA-Public Use
  Company Number: ES-JNJFOC-20120510065

PATIENT
  Age: 35 Year
  Sex: Male

DRUGS (4)
  1. PALIPERIDONE [Suspect]
     Indication: SCHIZOPHRENIA, PARANOID TYPE
     Route: 030
     Dates: start: 20120416
  2. CLOZAPINE [Suspect]
     Indication: PRODUCT USED FOR UNKNOWN INDICATION
     Route: 065
     Dates: start: 20120418
  3. CLOZAPINE [Suspect]
     Route: 065
     Dates: start: 20120430, end: 20120507
  4. ATENOLOL [Concomitant]
     Indication: PRODUCT USED FOR UNKNOWN INDICATION
     Route: 065

REACTIONS (1)
  - HEPATOTOXICITY [None]
